FAERS Safety Report 6934265-9 (Version None)
Quarter: 2010Q3

REPORT INFORMATION
  Report Type: 
  Country: None (occurrence: None)
  Receive Date: 20100820
  Receipt Date: 20100819
  Transmission Date: 20110219
  Serious: Yes (Hospitalization, Other)
  Sender: FDA-Public Use
  Company Number: US-CEPHALON-2010004210

PATIENT
  Sex: Female
  Weight: 66 kg

DRUGS (17)
  1. TREANDA [Suspect]
     Indication: BREAST CANCER
     Route: 042
     Dates: start: 20100128, end: 20100618
  2. ERLOTINIB HYDROCHLORIDE [Suspect]
     Indication: BREAST CANCER
     Route: 048
     Dates: start: 20100201, end: 20100707
  3. DEXAMETHASONE [Concomitant]
     Route: 048
  4. BACTRIM DS [Concomitant]
  5. VALTREX [Concomitant]
  6. FENTANYL CITRATE [Concomitant]
  7. NEURONTIN [Concomitant]
  8. CISPLATIN [Concomitant]
     Dates: start: 20100715
  9. ALOXI [Concomitant]
  10. CELEXA [Concomitant]
  11. ATIVAN [Concomitant]
  12. NYSTATIN [Concomitant]
  13. MOXIFLOXACIN [Concomitant]
  14. GEMZAR [Concomitant]
     Dates: start: 20100715
  15. ADVIL LIQUI-GELS [Concomitant]
  16. VISTARIL [Concomitant]
  17. ZOLOFT [Concomitant]

REACTIONS (3)
  - CD4 LYMPHOCYTES DECREASED [None]
  - FEBRILE NEUTROPENIA [None]
  - PLATELET COUNT DECREASED [None]
